FAERS Safety Report 22000988 (Version 1)
Quarter: 2023Q1

REPORT INFORMATION
  Report Type: Spontaneous
  Country: US (occurrence: US)
  Receive Date: 20230216
  Receipt Date: 20230216
  Transmission Date: 20230418
  Serious: No
  Sender: FDA-Public Use
  Company Number: US-FERRINGPH-2022FE01160

PATIENT
  Sex: Male

DRUGS (1)
  1. NOCDURNA [Suspect]
     Active Substance: DESMOPRESSIN ACETATE
     Indication: Product used for unknown indication
     Dosage: 55.3 UG, 1 TIME DAILY
     Route: 060

REACTIONS (3)
  - Drug ineffective [Unknown]
  - Contraindicated product prescribed [Unknown]
  - Off label use [Unknown]
